FAERS Safety Report 7632920-9 (Version None)
Quarter: 2011Q3

REPORT INFORMATION
  Report Type: 
  Country: None (occurrence: None)
  Receive Date: 20110725
  Receipt Date: 20110713
  Transmission Date: 20111222
  Serious: Yes (Other)
  Sender: FDA-Public Use
  Company Number: PHHY2011FR64369

PATIENT
  Age: 74 Year
  Sex: Female

DRUGS (5)
  1. ZOLEDRONOC ACID [Suspect]
     Indication: OSTEOPOROSIS POSTMENOPAUSAL
     Dosage: UNK UKN, UNK
     Route: 042
     Dates: start: 20110610
  2. ESCITALOPRAM [Concomitant]
     Dosage: 10 MG,
  3. PANTOPRAZOLE SODIUM [Concomitant]
     Dosage: 20 MG,
  4. PANTOPRAZOLE SODIUM [Concomitant]
     Dosage: 80 MG,
  5. PRAZEPAM [Concomitant]

REACTIONS (11)
  - DEPRESSION [None]
  - NAUSEA [None]
  - PAIN [None]
  - ARTHRALGIA [None]
  - PYREXIA [None]
  - HEADACHE [None]
  - SLEEP DISORDER [None]
  - DIARRHOEA [None]
  - BACK PAIN [None]
  - DYSPEPSIA [None]
  - PELVIC PAIN [None]
